FAERS Safety Report 12504476 (Version 1)
Quarter: 2016Q2

REPORT INFORMATION
  Report Type: Report from Study
  Country: BR (occurrence: BR)
  Receive Date: 20160628
  Receipt Date: 20160628
  Transmission Date: 20160815
  Serious: Yes (Hospitalization)
  Sender: FDA-Public Use
  Company Number: PHHY2016BR088366

PATIENT
  Sex: Male
  Weight: 117 kg

DRUGS (2)
  1. EXELON PATCH [Suspect]
     Active Substance: RIVASTIGMINE
     Indication: TREMOR
  2. EXELON PATCH [Suspect]
     Active Substance: RIVASTIGMINE
     Indication: PARKINSON^S DISEASE
     Dosage: 4.6 MG, (PATCH 5 CM2), QD
     Route: 062
     Dates: start: 201606

REACTIONS (3)
  - Tremor [Unknown]
  - Pulmonary thrombosis [Unknown]
  - Product use issue [Unknown]
